FAERS Safety Report 4747854-7 (Version None)
Quarter: 2005Q3

REPORT INFORMATION
  Report Type: 
  Country: None (occurrence: None)
  Receive Date: 20050816
  Receipt Date: 20050805
  Transmission Date: 20060218
  Serious: Yes (Other)
  Sender: FDA-Public Use
  Company Number: 23004M05GBR

PATIENT
  Age: 45 Year
  Sex: Female

DRUGS (5)
  1. REBIF [Suspect]
     Indication: RELAPSING-REMITTING MULTIPLE SCLEROSIS
     Dosage: 44, 3 IN 1 WEEKS, SUBCUTANEOUS
     Route: 058
     Dates: start: 19950101, end: 20040518
  2. OXYBUTYNIN [Concomitant]
  3. FLUOXETINE HCL [Concomitant]
  4. TIZANIDINE HYDROCHLORIDE [Concomitant]
  5. BACLOFEN [Concomitant]

REACTIONS (2)
  - INTESTINAL OBSTRUCTION [None]
  - OVARIAN CANCER [None]
